FAERS Safety Report 14190587 (Version 1)
Quarter: 2017Q4

REPORT INFORMATION
  Report Type: Spontaneous
  Country: US (occurrence: None)
  Receive Date: 20171114
  Receipt Date: 20171114
  Transmission Date: 20180321
  Serious: No
  Sender: FDA-Public Use
  Company Number: None

PATIENT
  Age: 55 Year
  Sex: Female
  Weight: 102.8 kg

DRUGS (7)
  1. TRAMADOL. [Concomitant]
     Active Substance: TRAMADOL
  2. CITALOPRAM [Concomitant]
     Active Substance: CITALOPRAM HYDROBROMIDE
  3. LEVOTHYROXINE SODIUM. [Concomitant]
     Active Substance: LEVOTHYROXINE SODIUM
  4. MELOXICAM. [Concomitant]
     Active Substance: MELOXICAM
  5. PRAMIPEXOLE. [Concomitant]
     Active Substance: PRAMIPEXOLE
  6. BACLOFEN. [Concomitant]
     Active Substance: BACLOFEN
  7. CISPLATIN. [Suspect]
     Active Substance: CISPLATIN
     Dates: end: 20161125

REACTIONS (4)
  - Abdominal pain [None]
  - Hypertension [None]
  - Constipation [None]
  - Lipase increased [None]

NARRATIVE: CASE EVENT DATE: 20171010
